FAERS Safety Report 11218957 (Version 1)
Quarter: 2015Q2

REPORT INFORMATION
  Report Type: Spontaneous
  Country: US (occurrence: None)
  Receive Date: 20150623
  Receipt Date: 20150623
  Transmission Date: 20150821
  Serious: Yes (Hospitalization, Other)
  Sender: FDA-Public Use
  Company Number: None

PATIENT
  Age: 90 Year
  Sex: Female
  Weight: 45.81 kg

DRUGS (9)
  1. CENTRUM MULTIVITAMIN [Concomitant]
  2. VITAMIN D3 [Concomitant]
     Active Substance: CHOLECALCIFEROL
  3. ALPHAGAN P [Suspect]
     Active Substance: BRIMONIDINE TARTRATE
     Indication: GLAUCOMA
     Dosage: BRIMONDINE 0.2%?1 DROP IN EACH EYE ?1 AM?1 BEDTIME?DROPED INTO EYE LID POCKET
     Route: 047
     Dates: end: 20150421
  4. ALPRAZOLAM. [Concomitant]
     Active Substance: ALPRAZOLAM
  5. PREVACID [Concomitant]
     Active Substance: LANSOPRAZOLE
  6. GABAPENTIN. [Concomitant]
     Active Substance: GABAPENTIN
  7. SERTRALINE [Concomitant]
     Active Substance: SERTRALINE HYDROCHLORIDE
  8. VITAMIN B COMPLEX [Concomitant]
     Active Substance: CYANOCOBALAMIN\DEXPANTHENOL\NIACINAMIDE\PYRIDOXINE HYDROCHLORIDE\RIBOFLAVIN 5^-PHOSPHATE SODIUM\THIAMINE HYDROCHLORIDE\VITAMIN B COMPLEX
  9. MAGNESIUM [Concomitant]
     Active Substance: MAGNESIUM

REACTIONS (10)
  - Muscular weakness [None]
  - Hypoaesthesia [None]
  - Memory impairment [None]
  - Confusional state [None]
  - Chills [None]
  - Insomnia [None]
  - Dysgeusia [None]
  - Depression [None]
  - Impaired self-care [None]
  - Gastric pH decreased [None]

NARRATIVE: CASE EVENT DATE: 201412
